FAERS Safety Report 5580336-1 (Version None)
Quarter: 2008Q1

REPORT INFORMATION
  Report Type: 
  Country: None (occurrence: None)
  Receive Date: 20080103
  Receipt Date: 20071231
  Transmission Date: 20080703
  Serious: Yes (Death)
  Sender: FDA-Public Use
  Company Number: PHEH2007US16243

PATIENT
  Age: 88 Year
  Sex: Male

DRUGS (1)
  1. EXJADE [Suspect]
     Dosage: 1500MG QD
     Route: 048
     Dates: start: 20070301, end: 20070801

REACTIONS (1)
  - DEATH [None]
